FAERS Safety Report 23756810 (Version 1)
Quarter: 2024Q2

REPORT INFORMATION
  Report Type: Spontaneous
  Country: BE (occurrence: BE)
  Receive Date: 20240418
  Receipt Date: 20240418
  Transmission Date: 20240716
  Serious: Yes (Other)
  Sender: FDA-Public Use
  Company Number: BE-PFIZER INC-PV202400042946

PATIENT
  Age: 56 Year
  Sex: Male

DRUGS (6)
  1. TACROLIMUS [Suspect]
     Active Substance: TACROLIMUS
     Indication: Immunosuppressant drug therapy
     Dosage: UNK
     Route: 065
  2. MYCOPHENOLATE MOFETIL [Suspect]
     Active Substance: MYCOPHENOLATE MOFETIL
     Indication: Immunosuppressant drug therapy
     Dosage: UNK
     Route: 065
  3. COMIRNATY (TOZINAMERAN) [Suspect]
     Active Substance: TOZINAMERAN
     Indication: COVID-19 immunisation
     Dosage: DOSE 3 (BOOSTER), SINGLE, TOTAL
     Route: 065
  4. COMIRNATY (TOZINAMERAN) [Suspect]
     Active Substance: TOZINAMERAN
     Dosage: DOSE 4 (BOOSTER), SINGLE, TOTAL
     Route: 065
  5. TOZINAMERAN [Suspect]
     Active Substance: TOZINAMERAN
     Indication: COVID-19 immunisation
     Dosage: DOSE 1, SINGLE, TOTAL
     Route: 065
  6. TOZINAMERAN [Suspect]
     Active Substance: TOZINAMERAN
     Dosage: DOSE 2, SINGLE, TOTAL
     Route: 065

REACTIONS (3)
  - COVID-19 [Unknown]
  - Vaccination failure [Unknown]
  - Drug ineffective [Unknown]
